FAERS Safety Report 6967518-9 (Version None)
Quarter: 2010Q3

REPORT INFORMATION
  Report Type: 
  Country: None (occurrence: None)
  Receive Date: 20100907
  Receipt Date: 20100826
  Transmission Date: 20110219
  Serious: Yes (Hospitalization)
  Sender: FDA-Public Use
  Company Number: DE-SANOFI-AVENTIS-2010SA050835

PATIENT
  Age: 79 Year
  Sex: Female

DRUGS (8)
  1. OXALIPLATIN [Suspect]
     Route: 042
  2. OXALIPLATIN [Suspect]
     Route: 042
     Dates: start: 20100706, end: 20100706
  3. FLUOROURACIL [Suspect]
     Route: 042
  4. FLUOROURACIL [Suspect]
     Route: 042
     Dates: start: 20100518, end: 20100519
  5. FOLINIC ACID [Suspect]
     Route: 065
  6. CAPECITABINE [Suspect]
     Route: 048
     Dates: end: 20100712
  7. BEVACIZUMAB [Suspect]
     Route: 042
  8. BEVACIZUMAB [Suspect]
     Route: 042
     Dates: start: 20100629, end: 20100629

REACTIONS (2)
  - CIRCULATORY COLLAPSE [None]
  - DEPRESSED MOOD [None]
